FAERS Safety Report 5712330-1 (Version None)
Quarter: 2008Q2

REPORT INFORMATION
  Report Type: 
  Country: None (occurrence: None)
  Receive Date: 20080418
  Receipt Date: 20080409
  Transmission Date: 20081010
  Serious: Yes (Other)
  Sender: FDA-Public Use
  Company Number: 2008AP000229

PATIENT
  Age: 49 Year
  Sex: Male

DRUGS (10)
  1. PAROXETINE HCL [Suspect]
     Indication: DEPRESSION
     Dosage: 6 MG; QD; PO
     Route: 048
     Dates: start: 20070501
  2. TERAZOSIN HCL [Suspect]
     Indication: HYPERHIDROSIS
     Dosage: 5 MG; QD; PO
     Route: 048
     Dates: start: 20040101
  3. TESTOSTERONE [Concomitant]
  4. TESTOSTERONE [Concomitant]
  5. TESTOSTERONE [Concomitant]
  6. ATORVASTATIN [Concomitant]
  7. MIRTAZAPINE [Concomitant]
  8. LAMOTRIGINE [Concomitant]
  9. VENLAFAXINE HYDROCHLORIDE [Concomitant]
  10. TERAZOSIN HYDROCHLORIDE [Concomitant]

REACTIONS (6)
  - ALANINE AMINOTRANSFERASE INCREASED [None]
  - ASPARTATE AMINOTRANSFERASE INCREASED [None]
  - BLOOD TESTOSTERONE DECREASED [None]
  - DEPRESSION [None]
  - DRUG INEFFECTIVE [None]
  - PHARMACEUTICAL PRODUCT COMPLAINT [None]
